FAERS Safety Report 7628812-1 (Version None)
Quarter: 2011Q3

REPORT INFORMATION
  Report Type: 
  Country: None (occurrence: None)
  Receive Date: 20110715
  Receipt Date: 20110630
  Transmission Date: 20111222
  Serious: Yes (Other)
  Sender: FDA-Public Use
  Company Number: LTI2011A00187

PATIENT
  Age: 81 Year
  Sex: Male

DRUGS (7)
  1. ASPIRIN [Concomitant]
  2. SECTRAL [Concomitant]
  3. COVERAM(PERINDOPRIL, AMLODIPINE) [Concomitant]
  4. ACTOS [Suspect]
     Indication: TYPE 2 DIABETES MELLITUS
     Dosage: (1 D), ORAL
     Route: 048
     Dates: start: 20080101, end: 20110601
  5. AMARYL [Concomitant]
  6. LASIX [Concomitant]
  7. INIPOMP(PANTOPERAZOLE) [Concomitant]

REACTIONS (1)
  - BLADDER CANCER [None]
